FAERS Safety Report 8362152-0 (Version None)
Quarter: 2012Q2

REPORT INFORMATION
  Report Type: 
  Country: None (occurrence: None)
  Receive Date: 20120515
  Receipt Date: 20120507
  Transmission Date: 20120825
  Serious: Yes (Congenital Anomaly, Other)
  Sender: FDA-Public Use
  Company Number: NL-BAXTER-2012BAX005481

PATIENT

DRUGS (4)
  1. AZATHIOPRINE [Concomitant]
     Indication: MATERNAL EXPOSURE BEFORE PREGNANCY
  2. CYCLOPHOSPHAMIDE [Suspect]
     Indication: MATERNAL EXPOSURE BEFORE PREGNANCY
  3. PREDNISOLONE [Concomitant]
     Indication: MATERNAL EXPOSURE BEFORE PREGNANCY
  4. COTRIM [Concomitant]
     Indication: MATERNAL EXPOSURE BEFORE PREGNANCY

REACTIONS (4)
  - MATERNAL EXPOSURE BEFORE PREGNANCY [None]
  - VENTRICULAR SEPTAL DEFECT [None]
  - PREMATURE BABY [None]
  - CLEFT PALATE [None]
